FAERS Safety Report 10925046 (Version 2)
Quarter: 2015Q2

REPORT INFORMATION
  Report Type: Spontaneous
  Country: US (occurrence: US)
  Receive Date: 20150318
  Receipt Date: 20150524
  Transmission Date: 20150821
  Serious: No
  Sender: FDA-Public Use
  Company Number: US-JNJFOC-20121002272

PATIENT
  Age: 63 Year
  Sex: Female
  Weight: 113.4 kg

DRUGS (4)
  1. NIZORAL A-D [Suspect]
     Active Substance: KETOCONAZOLE
     Indication: DRY SKIN
     Dosage: 1%, 1-2 TIMES DAILY EVERY MORNING
     Route: 061
  2. NIZORAL A-D [Suspect]
     Active Substance: KETOCONAZOLE
     Indication: DANDRUFF
     Dosage: 1%, 1-2 TIMES DAILY EVERY MORNING
     Route: 061
  3. NIZORAL A-D [Suspect]
     Active Substance: KETOCONAZOLE
     Indication: SEBORRHOEIC DERMATITIS
     Dosage: 1%, 1-2 TIMES DAILY EVERY MORNING
     Route: 061
  4. MOISTURIZING CREAM [Concomitant]
     Active Substance: DIMETHICONE
     Indication: SEBORRHOEIC DERMATITIS
     Route: 065

REACTIONS (4)
  - Drug administered at inappropriate site [Unknown]
  - Product use issue [Unknown]
  - Inappropriate schedule of drug administration [Unknown]
  - Drug prescribing error [Not Recovered/Not Resolved]
